FAERS Safety Report 10032422 (Version 1)
Quarter: 2014Q1

REPORT INFORMATION
  Report Type: Spontaneous
  Country: BE (occurrence: None)
  Receive Date: 20140320
  Receipt Date: 20140320
  Transmission Date: 20141002
  Serious: Yes (Hospitalization)
  Sender: FDA-Public Use
  Company Number: 2014AP001856

PATIENT
  Age: 81 Year
  Sex: Male

DRUGS (6)
  1. VENLAFAXINE (VENLAFAXINE) [Suspect]
     Dosage: 150 MG; UNKNOWN; PO; QD
     Route: 048
  2. ESCITALOPRAM (ESCITALOPRAM) [Suspect]
     Dosage: 10 MG; UNKNOWN; PO; QD
     Route: 048
  3. LEVODOPA [Suspect]
     Indication: PARKINSON^S DISEASE
     Dosage: 250 MG; UNKNOWN; PO; QD
     Route: 048
  4. PRAMIPEXOLE (PRAMIPEXOLE) [Suspect]
     Indication: PARKINSON^S DISEASE
     Dosage: 2.1 MG; UNKNOWN; QD
  5. CEFUROXIME (CEFUROXIME) [Concomitant]
  6. METRONIDAZOLE (METRONIDAZOLE) [Concomitant]

REACTIONS (2)
  - Neuroleptic malignant syndrome [None]
  - Food interaction [None]
